FAERS Safety Report 4304609-5 (Version None)
Quarter: 2004Q1

REPORT INFORMATION
  Report Type: 
  Country: None (occurrence: None)
  Receive Date: 20040226
  Receipt Date: 20031017
  Transmission Date: 20041129
  Serious: Yes (Other)
  Sender: FDA-Public Use
  Company Number: BW-BRISTOL-MYERS SQUIBB COMPANY-12427258

PATIENT

DRUGS (3)
  1. DIDANOSINE [Suspect]
  2. ZIDOVUDINE [Suspect]
     Dosage: REDUCED TO 200 MG 16-OCT-2003
  3. NEVIRAPINE [Suspect]

REACTIONS (1)
  - NEUTROPENIA [None]
